FAERS Safety Report 5218316-8 (Version None)
Quarter: 2007Q1

REPORT INFORMATION
  Report Type: 
  Country: None (occurrence: None)
  Receive Date: 20070124
  Receipt Date: 20070112
  Transmission Date: 20070707
  Serious: Yes (Life-Threatening, Hospitalization, Other)
  Sender: FDA-Public Use
  Company Number: US-PFIZER INC-2007003664

PATIENT
  Sex: Female

DRUGS (2)
  1. SUTENT [Suspect]
     Indication: RENAL CELL CARCINOMA STAGE UNSPECIFIED
     Dates: start: 20061001, end: 20070108
  2. DILAUDID [Concomitant]
     Indication: PAIN

REACTIONS (3)
  - BLOOD CREATININE INCREASED [None]
  - NAUSEA [None]
  - PNEUMATOSIS [None]
